FAERS Safety Report 7769770-9 (Version None)
Quarter: 2011Q3

REPORT INFORMATION
  Report Type: 
  Country: None (occurrence: None)
  Receive Date: 20110922
  Receipt Date: 20110520
  Transmission Date: 20111222
  Serious: No
  Sender: FDA-Public Use
  Company Number: US-ASTRAZENECA-2011SE31427

PATIENT
  Sex: Female

DRUGS (2)
  1. SEROQUEL XR [Suspect]
     Indication: POSTPARTUM DEPRESSION
     Route: 048
  2. SEROQUEL XR [Suspect]
     Indication: BRIEF PSYCHOTIC DISORDER, WITH POSTPARTUM ONSET
     Route: 048

REACTIONS (3)
  - OFF LABEL USE [None]
  - ARTIFICIAL CROWN PROCEDURE [None]
  - DYSGEUSIA [None]
